FAERS Safety Report 7290072-1 (Version None)
Quarter: 2011Q1

REPORT INFORMATION
  Report Type: 
  Country: None (occurrence: None)
  Receive Date: 20110214
  Receipt Date: 20110203
  Transmission Date: 20110831
  Serious: Yes (Hospitalization)
  Sender: FDA-Public Use
  Company Number: US-ASTRAZENECA-2011SE06357

PATIENT
  Age: 59 Year
  Sex: Female

DRUGS (2)
  1. PREVACID [Concomitant]
  2. NEXIUM [Suspect]
     Route: 048

REACTIONS (1)
  - GLAUCOMA [None]
